FAERS Safety Report 10129483 (Version 1)
Quarter: 2014Q2

REPORT INFORMATION
  Report Type: Report from Study
  Country: JP (occurrence: JP)
  Receive Date: 20140428
  Receipt Date: 20140428
  Transmission Date: 20141212
  Serious: Yes (Other)
  Sender: FDA-Public Use
  Company Number: JP-CELGENEUS-087-50794-14043778

PATIENT
  Age: 75 Year
  Sex: Male

DRUGS (6)
  1. VIDAZA [Suspect]
     Indication: PRODUCT USED FOR UNKNOWN INDICATION
     Route: 065
     Dates: start: 20120523, end: 20120529
  2. VIDAZA [Suspect]
     Route: 065
     Dates: start: 20120625, end: 20120629
  3. VIDAZA [Suspect]
     Route: 065
     Dates: start: 20120723, end: 20120727
  4. VIDAZA [Suspect]
     Route: 065
     Dates: start: 20120828, end: 20120831
  5. VIDAZA [Suspect]
     Route: 065
     Dates: start: 20121009, end: 20121011
  6. VIDAZA [Suspect]
     Route: 065
     Dates: start: 20121113, end: 20121116

REACTIONS (1)
  - Drug-induced liver injury [Recovered/Resolved]
